FAERS Safety Report 6504442-X (Version None)
Quarter: 2009Q4

REPORT INFORMATION
  Report Type: 
  Country: None (occurrence: None)
  Receive Date: 20091215
  Receipt Date: 20091204
  Transmission Date: 20100525
  Serious: Yes (Hospitalization)
  Sender: FDA-Public Use
  Company Number: 2009AC000496

PATIENT
  Age: 62 Year
  Sex: Male

DRUGS (29)
  1. DIGOXIN [Suspect]
     Dosage: PO
     Route: 048
  2. ASPIRIN [Concomitant]
  3. AMIODARONE HCL [Concomitant]
  4. PLAVIX [Concomitant]
  5. TOPROL-XL [Concomitant]
  6. LIPITOR [Concomitant]
  7. ALTACE [Concomitant]
  8. PERCOCET [Concomitant]
  9. LASIX [Concomitant]
  10. PANTOPRAZOLE [Concomitant]
  11. ENOXAPARIN SODIUM [Concomitant]
  12. TYLENOL (CAPLET) [Concomitant]
  13. METOPROLOL TARTRATE [Concomitant]
  14. PROMETHAZINE [Concomitant]
  15. ZOLPIDEM TARTRATE [Concomitant]
  16. HYROCODONE [Concomitant]
  17. NEXIUM [Concomitant]
  18. AMBIEN [Concomitant]
  19. KETOPROFEN [Concomitant]
  20. DIAZEPAM [Concomitant]
  21. TUSSINAL [Concomitant]
  22. LEVAQUIN [Concomitant]
  23. SINGULAIR [Concomitant]
  24. RAMIPRIL [Concomitant]
  25. GABAPENTIN [Concomitant]
  26. IBUPROFEN [Concomitant]
  27. LOVENOX [Concomitant]
  28. CARDIZEM [Concomitant]
  29. LORTAB [Concomitant]

REACTIONS (22)
  - ABASIA [None]
  - ANGINA UNSTABLE [None]
  - ANHEDONIA [None]
  - ANXIETY [None]
  - ARRHYTHMIA [None]
  - ASTHENIA [None]
  - ATRIAL FIBRILLATION [None]
  - CARDIAC ENZYMES INCREASED [None]
  - CARDIOACTIVE DRUG LEVEL INCREASED [None]
  - EATING DISORDER [None]
  - ECONOMIC PROBLEM [None]
  - GASTRITIS [None]
  - HIATUS HERNIA [None]
  - INCORRECT DOSE ADMINISTERED [None]
  - MENTAL DISORDER [None]
  - MUSCLE STRAIN [None]
  - PAIN [None]
  - PALPITATIONS [None]
  - RADICULOPATHY [None]
  - THERAPEUTIC AGENT TOXICITY [None]
  - UNEVALUABLE EVENT [None]
  - VISUAL IMPAIRMENT [None]
